FAERS Safety Report 15668990 (Version 2)
Quarter: 2018Q4

REPORT INFORMATION
  Report Type: Report from Study
  Country: DE (occurrence: DE)
  Receive Date: 20181129
  Receipt Date: 20181207
  Transmission Date: 20190205
  Serious: No
  Sender: FDA-Public Use
  Company Number: DE-ROCHE-2222328

PATIENT
  Age: 34 Year
  Sex: Female
  Weight: 69 kg

DRUGS (10)
  1. IBUPROFEN. [Concomitant]
     Active Substance: IBUPROFEN
     Indication: MYALGIA
     Dosage: MUSCLE PAIN BOTH THIGHS
     Route: 048
     Dates: start: 20180928
  2. CLARITHROMYCIN. [Concomitant]
     Active Substance: CLARITHROMYCIN
     Indication: HELICOBACTER INFECTION
     Route: 048
     Dates: start: 20181018, end: 20181024
  3. FENISTIL (GERMANY) [Concomitant]
     Route: 042
     Dates: start: 20180619, end: 20180619
  4. OCRELIZUMAB. [Suspect]
     Active Substance: OCRELIZUMAB
     Indication: MULTIPLE SCLEROSIS
     Dosage: DATE OF LAST DOSE: 19/JUN/2018
     Route: 048
     Dates: start: 20180605
  5. METHYPRED [Concomitant]
     Route: 042
     Dates: start: 20180619, end: 20180619
  6. PREDNIFLUID [Concomitant]
     Indication: UVEITIS
     Route: 047
     Dates: start: 20181122
  7. FENISTIL (GERMANY) [Concomitant]
     Indication: PREMEDICATION
     Route: 042
     Dates: start: 20180605, end: 20180605
  8. AIDA (GERMANY) [Concomitant]
     Indication: CONTRACEPTION
     Dosage: 0.02 MG/3 MG
     Route: 048
     Dates: start: 2008
  9. METHYPRED [Concomitant]
     Indication: PREMEDICATION
     Route: 042
     Dates: start: 20180605, end: 20180605
  10. METRONIDAZOL [Concomitant]
     Active Substance: METRONIDAZOLE
     Indication: HELICOBACTER INFECTION
     Route: 048
     Dates: start: 20181018, end: 20181024

REACTIONS (1)
  - Chronic gastritis [Not Recovered/Not Resolved]

NARRATIVE: CASE EVENT DATE: 20181015
